FAERS Safety Report 23400857 (Version 1)
Quarter: 2024Q1

REPORT INFORMATION
  Report Type: Spontaneous
  Country: GB (occurrence: GB)
  Receive Date: 20240115
  Receipt Date: 20240115
  Transmission Date: 20240410
  Serious: Yes (Hospitalization, Other)
  Sender: FDA-Public Use
  Company Number: GB-LDELTA-NLLD0042609

PATIENT
  Age: 33 Year
  Sex: Male

DRUGS (8)
  1. AMISULPRIDE [Suspect]
     Active Substance: AMISULPRIDE
     Indication: Schizophrenia
     Dosage: 400 MILLIGRAM, ONCE A DAY
     Route: 050
  2. AMISULPRIDE [Suspect]
     Active Substance: AMISULPRIDE
     Dosage: 7200 MILLIGRAM, ONCE A DAY
     Route: 050
     Dates: start: 20231219, end: 20231219
  3. MIRTAZAPINE [Suspect]
     Active Substance: MIRTAZAPINE
     Indication: Schizophrenia
     Dosage: 45 MILLIGRAM, ONCE A DAY
     Route: 050
  4. MIRTAZAPINE [Suspect]
     Active Substance: MIRTAZAPINE
     Dosage: 1260 MILLIGRAM, ONCE A DAY
     Route: 050
     Dates: start: 20231219, end: 20231219
  5. CLOZAPINE [Suspect]
     Active Substance: CLOZAPINE
     Indication: Schizophrenia
     Dosage: 125MG NOON AND 300MG BEDTIME, TWO TIMES A DAY
     Route: 050
     Dates: start: 20211020, end: 20231217
  6. CLOZAPINE [Suspect]
     Active Substance: CLOZAPINE
     Dosage: 2975 MILLIGRAM, ONCE A DAY
     Route: 050
     Dates: start: 20231219, end: 20231219
  7. CLOZAPINE [Suspect]
     Active Substance: CLOZAPINE
     Dosage: UNK
     Route: 050
     Dates: start: 20231229
  8. ALBUTEROL [Concomitant]
     Active Substance: ALBUTEROL
     Indication: Asthma
     Dosage: UNK
     Route: 050

REACTIONS (2)
  - Electrocardiogram QT prolonged [Recovered/Resolved]
  - Intentional overdose [Recovered/Resolved]

NARRATIVE: CASE EVENT DATE: 20231219
